FAERS Safety Report 9729878 (Version 1)
Quarter: 2013Q4

REPORT INFORMATION
  Report Type: Spontaneous
  Country: NL (occurrence: None)
  Receive Date: 20131203
  Receipt Date: 20131203
  Transmission Date: 20140711
  Serious: Yes (Life-Threatening, Hospitalization)
  Sender: FDA-Public Use
  Company Number: AUR-APL-2013-10032

PATIENT
  Sex: Male

DRUGS (10)
  1. GABAPENTIN [Suspect]
     Indication: DIABETIC FOOT
     Dosage: 3 DD (DIVIDED DOSES) (300 MG), UNKNOWN
  2. OMEPRAZOLE [Suspect]
     Dosage: 1 DD (DIVIDED DOSE) (20 MG), UNKNOWN?
  3. HUMAN INSULIN [Suspect]
     Indication: TYPE 1 DIABETES MELLITUS
  4. INSULIN ISOPHANE [Suspect]
     Indication: TYPE 1 DIABETES MELLITUS
  5. PREDNISOLONE (PREDNISOLONE) [Concomitant]
  6. GRAMICIDIN (GRAMICIDIN) [Concomitant]
  7. NEOMYCIN SULPHATE (NEOMYCIN SULFATE) [Concomitant]
  8. POLYMYXIN B SULPHATE (POLYMYXIN B SULFATE) [Concomitant]
  9. ALFUZOSIN (ALFUZOSIN) [Concomitant]
  10. INSULIN (INSULIN) [Concomitant]

REACTIONS (4)
  - Hypoglycaemia [None]
  - Drug interaction [None]
  - Tremor [None]
  - Coma [None]
